FAERS Safety Report 9347692 (Version 1)
Quarter: 2013Q2

REPORT INFORMATION
  Report Type: Spontaneous
  Country: US (occurrence: US)
  Receive Date: 20130614
  Receipt Date: 20130614
  Transmission Date: 20140414
  Serious: Yes (Hospitalization, Other)
  Sender: FDA-Public Use
  Company Number: US-PFIZER INC-2010053327

PATIENT
  Age: 64 Year
  Sex: Male
  Weight: 111 kg

DRUGS (13)
  1. LIPITOR [Suspect]
     Indication: BLOOD CHOLESTEROL INCREASED
     Dosage: 40 MG, 1X/DAY
     Route: 048
  2. LYRICA [Suspect]
     Indication: NEUROPATHY PERIPHERAL
     Dosage: 100 MG, DAILY
  3. LYRICA [Suspect]
     Indication: NEURALGIA
  4. PROCARDIA [Suspect]
     Indication: HYPERTENSION
     Dosage: 60 MG, 1X/DAY
     Route: 048
     Dates: start: 2009
  5. PROCARDIA [Suspect]
     Indication: CARDIAC DISORDER
     Dosage: 60 MG, 2X/DAY
     Route: 048
  6. CARDURA [Suspect]
     Indication: HYPERTENSION
     Dosage: 2 MG, 2X/DAY
     Route: 048
     Dates: start: 2009, end: 2013
  7. CARDURA [Suspect]
     Indication: CARDIAC DISORDER
  8. INSULIN DETEMIR [Concomitant]
     Indication: DIABETES MELLITUS
     Dosage: 45 IU, 2X/DAY
  9. NOVOLOG [Concomitant]
     Indication: DIABETES MELLITUS
     Dosage: UNK, ON SLIDING SCALE DEPENDING ON THE BLOOD SUGAR LEVEL
  10. METOPROLOL [Concomitant]
     Indication: HYPERTENSION
     Dosage: 100 MG, 2X/DAY
     Route: 048
  11. ALLOPURINOL [Concomitant]
     Indication: GOUT
     Dosage: 100 MG, 1X/DAY
     Route: 048
  12. CALCIUM ACETATE [Concomitant]
     Indication: MINERAL SUPPLEMENTATION
     Dosage: 676 MG, UNK
     Route: 048
  13. COUMADIN [Concomitant]
     Indication: ANTICOAGULANT THERAPY
     Dosage: 7.5 MG, DAILY

REACTIONS (7)
  - Wound infection [Recovered/Resolved]
  - Myocardial infarction [Recovering/Resolving]
  - Gangrene [Unknown]
  - Poor peripheral circulation [Recovered/Resolved]
  - Lower extremity mass [Not Recovered/Not Resolved]
  - Atrial fibrillation [Unknown]
  - Fluid retention [Unknown]
